FAERS Safety Report 8650251 (Version 2)
Quarter: 2012Q4

REPORT INFORMATION
  Report Type: 
  Country: US (occurrence: US)
  Receive Date: 20120705
  Receipt Date: 20121107
  Transmission Date: 20130627
  Serious: No
  Sender: FDA-Public Use
  Company Number: US-PFIZER INC-2012158529

PATIENT
  Age: 57 Year
  Sex: Female

DRUGS (4)
  1. PROTONIX [Suspect]
     Indication: ACID REFLUX (OESOPHAGEAL)
     Dosage: 40 mg, UNK
     Dates: start: 2010
  2. IBUPROFEN [Concomitant]
     Dosage: 600 mg, UNK
  3. CYANOCOBALAMIN [Concomitant]
     Dosage: 500 mg, UNK
  4. DIOVAN (VALSARTAN) [Concomitant]
     Dosage: 160 mg, UNK

REACTIONS (1)
  - Limb injury [Unknown]
